FAERS Safety Report 9844029 (Version 1)
Quarter: 2013Q4

REPORT INFORMATION
  Report Type: Spontaneous
  Country: US (occurrence: None)
  Receive Date: 20131223
  Receipt Date: 20131223
  Transmission Date: 20140711
  Serious: No
  Sender: FDA-Public Use
  Company Number: 1000048723

PATIENT
  Age: 87 Year
  Sex: Male

DRUGS (1)
  1. LINZESS [Suspect]
     Indication: IRRITABLE BOWEL SYNDROME
     Dosage: 145 MCG (145 MCG, 1 IN 1 D), ORAL
     Route: 048
     Dates: start: 20130908

REACTIONS (7)
  - Diarrhoea [None]
  - Abnormal faeces [None]
  - Nausea [None]
  - Increased appetite [None]
  - Abdominal distension [None]
  - Unevaluable event [None]
  - Dyspepsia [None]
